FAERS Safety Report 24582162 (Version 2)
Quarter: 2024Q4

REPORT INFORMATION
  Report Type: Report from Study
  Country: US (occurrence: US)
  Receive Date: 20241105
  Receipt Date: 20241202
  Transmission Date: 20250115
  Serious: Yes (Other)
  Sender: ABBVIE
  Company Number: US-ABBVIE-5944546

PATIENT
  Age: 66 Year
  Sex: Male

DRUGS (1)
  1. SKYRIZI [Suspect]
     Active Substance: RISANKIZUMAB-RZAA
     Indication: Psoriatic arthropathy
     Route: 058
     Dates: start: 20240711

REACTIONS (7)
  - Retinal tear [Recovering/Resolving]
  - Vision blurred [Not Recovered/Not Resolved]
  - Diabetes mellitus [Unknown]
  - Vitrectomy [Unknown]
  - Vitreous detachment [Recovering/Resolving]
  - Blood glucose increased [Not Recovered/Not Resolved]
  - Epiretinal membrane [Recovering/Resolving]

NARRATIVE: CASE EVENT DATE: 20240101
